FAERS Safety Report 7308304-X (Version None)
Quarter: 2011Q1

REPORT INFORMATION
  Report Type: 
  Country: None (occurrence: None)
  Receive Date: 20110223
  Receipt Date: 20110214
  Transmission Date: 20110831
  Serious: Yes (Hospitalization)
  Sender: FDA-Public Use
  Company Number: A0912267A

PATIENT
  Age: 51 Year
  Sex: Male

DRUGS (3)
  1. METFORMIN [Concomitant]
     Dates: start: 20060101
  2. AGGRENOX [Concomitant]
     Dates: start: 20100101
  3. AVANDIA [Suspect]
     Dosage: 8MG PER DAY
     Route: 048
     Dates: start: 20060101, end: 20100501

REACTIONS (7)
  - CEREBROVASCULAR ACCIDENT [None]
  - DIABETES MELLITUS INADEQUATE CONTROL [None]
  - CHOLECYSTECTOMY [None]
  - ADVERSE EVENT [None]
  - ABDOMINAL DISCOMFORT [None]
  - DIZZINESS [None]
  - HEADACHE [None]
